FAERS Safety Report 7518213-9 (Version None)
Quarter: 2011Q2

REPORT INFORMATION
  Report Type: 
  Country: None (occurrence: None)
  Receive Date: 20110602
  Receipt Date: 20110516
  Transmission Date: 20111010
  Serious: No
  Sender: FDA-Public Use
  Company Number: US-B.I. PHARMACEUTICALS,INC./RIDGEFIELD-2011-BP-13241BP

PATIENT
  Sex: Male

DRUGS (5)
  1. LEXAPRO [Concomitant]
     Indication: DEPRESSION
  2. LIPITOR [Concomitant]
     Indication: BLOOD CHOLESTEROL INCREASED
  3. PRADAXA [Suspect]
     Indication: CARDIAC DISORDER
     Dosage: 300 MG
     Route: 048
     Dates: start: 20110401
  4. LASIX [Concomitant]
     Indication: FLUID RETENTION
  5. METOPROLOL TARTRATE [Concomitant]
     Indication: HYPERTENSION

REACTIONS (2)
  - LETHARGY [None]
  - OEDEMA PERIPHERAL [None]
